FAERS Safety Report 22609406 (Version 1)
Quarter: 2023Q2

REPORT INFORMATION
  Report Type: Spontaneous
  Country: GB (occurrence: GB)
  Receive Date: 20230616
  Receipt Date: 20230616
  Transmission Date: 20230721
  Serious: Yes (Other)
  Sender: FDA-Public Use
  Company Number: None

PATIENT
  Age: 40 Year
  Sex: Female
  Weight: 67 kg

DRUGS (9)
  1. RAMIPRIL [Suspect]
     Active Substance: RAMIPRIL
     Indication: Ill-defined disorder
     Dosage: UNK
     Route: 065
     Dates: start: 20230609
  2. BENDROFLUMETHIAZIDE [Concomitant]
     Active Substance: BENDROFLUMETHIAZIDE
     Indication: Blood pressure abnormal
     Dosage: 1 DOSAGE FORM, QD (ONE TABLET A DAY FOR BLOOD PRESSURE)
     Route: 065
     Dates: start: 20210423
  3. BENDROFLUMETHIAZIDE [Concomitant]
     Active Substance: BENDROFLUMETHIAZIDE
     Indication: Ill-defined disorder
  4. CANDESARTAN [Concomitant]
     Active Substance: CANDESARTAN
     Indication: Blood pressure abnormal
     Dosage: 1 DOSAGE FORM, QD (TAKE ONE DAILY FOR BLOOD PRESSURE)
     Route: 065
     Dates: start: 20230609
  5. CANDESARTAN [Concomitant]
     Active Substance: CANDESARTAN
     Indication: Ill-defined disorder
  6. RAMIPRIL [Concomitant]
     Active Substance: RAMIPRIL
     Indication: Blood pressure increased
     Dosage: 1 DF, QD (TAKE ONE CAPSULE ONCE DAILY TO REDUCE BLOOD PRE)
     Route: 065
     Dates: start: 20230504, end: 20230601
  7. RAMIPRIL [Concomitant]
     Active Substance: RAMIPRIL
     Indication: Ill-defined disorder
  8. FELODIPINE [Concomitant]
     Active Substance: FELODIPINE
     Indication: Blood pressure abnormal
     Dosage: 1 DOSAGE FORM, QD (ONE TABLET A DAY FOR BLOOD PRESSURE)
     Route: 065
     Dates: start: 20210423
  9. FELODIPINE [Concomitant]
     Active Substance: FELODIPINE
     Indication: Ill-defined disorder

REACTIONS (3)
  - Muscle fatigue [Recovering/Resolving]
  - Epistaxis [Recovering/Resolving]
  - Muscle spasms [Recovering/Resolving]

NARRATIVE: CASE EVENT DATE: 20230609
